FAERS Safety Report 24593774 (Version 1)
Quarter: 2024Q4

REPORT INFORMATION
  Report Type: Spontaneous
  Country: CA (occurrence: CA)
  Receive Date: 20241108
  Receipt Date: 20241108
  Transmission Date: 20250115
  Serious: Yes (Other)
  Sender: PFIZER
  Company Number: CA-PFIZER INC-PV202400144405

PATIENT
  Age: 50 Year
  Sex: Female

DRUGS (4)
  1. TUKYSA [Suspect]
     Active Substance: TUCATINIB
     Indication: HER2 positive breast cancer
     Dosage: UNK
     Dates: start: 20221118
  2. TUKYSA [Suspect]
     Active Substance: TUCATINIB
     Indication: Breast cancer
  3. CAPECITABINE [Concomitant]
     Active Substance: CAPECITABINE
     Dosage: UNK
  4. TRASTUZUMAB [Concomitant]
     Active Substance: TRASTUZUMAB
     Dosage: UNK

REACTIONS (6)
  - Syncope [Unknown]
  - Seizure [Unknown]
  - Thrombocytopenia [Unknown]
  - Hyperbilirubinaemia [Recovering/Resolving]
  - Vomiting [Unknown]
  - Urinary incontinence [Unknown]
